FAERS Safety Report 5710080-9 (Version None)
Quarter: 2008Q2

REPORT INFORMATION
  Report Type: 
  Country: None (occurrence: None)
  Receive Date: 20080418
  Receipt Date: 20070810
  Transmission Date: 20081010
  Serious: No
  Sender: FDA-Public Use
  Company Number: US-ASTRAZENECA-2007UW19416

PATIENT
  Age: 56 Year
  Sex: Female
  Weight: 47.6 kg

DRUGS (3)
  1. METOPROLOL SUCCINATE [Suspect]
     Indication: HYPERTENSION
     Route: 048
  2. RESTASIS [Concomitant]
  3. PREMARIN CREME [Concomitant]

REACTIONS (4)
  - ANHIDROSIS [None]
  - DRY EYE [None]
  - NASAL DRYNESS [None]
  - TEMPERATURE INTOLERANCE [None]
